FAERS Safety Report 8241380-9 (Version None)
Quarter: 2012Q1

REPORT INFORMATION
  Report Type: 
  Country: None (occurrence: None)
  Receive Date: 20120328
  Receipt Date: 20120316
  Transmission Date: 20120608
  Serious: No
  Sender: FDA-Public Use
  Company Number: US-B.I. PHARMACEUTICALS,INC./RIDGEFIELD-2012-BP-05079BP

PATIENT
  Sex: Male

DRUGS (25)
  1. DOXYCYCLINE [Concomitant]
     Indication: PNEUMONIA
     Dosage: 200 MG
     Route: 048
     Dates: start: 20120307
  2. GLYBURIDE [Concomitant]
     Indication: DIABETES MELLITUS
     Dosage: 6 MG
     Route: 048
  3. VALSARTAN [Concomitant]
     Dosage: 160 MG
     Route: 048
  4. AVODART [Concomitant]
     Indication: BENIGN PROSTATIC HYPERPLASIA
     Dosage: 0.5 MG
     Route: 048
  5. PREDNISONE TAB [Concomitant]
     Indication: PNEUMONIA
     Dosage: 10 MG
     Route: 048
     Dates: start: 20120307
  6. FLUTICASONE PROPIONATE/SALMETEROL [Concomitant]
     Indication: PNEUMONIA
     Route: 055
     Dates: start: 20120307
  7. PRASUGREL [Concomitant]
     Dosage: 10 MG
     Route: 048
  8. TOLTERODINE TARTRATE [Concomitant]
     Indication: BENIGN PROSTATIC HYPERPLASIA
  9. CLONIDINE [Concomitant]
     Dosage: 0.4 MG
     Route: 048
  10. METOPROLOL TARTRATE [Concomitant]
     Indication: HYPERTENSION
     Dosage: 50 MG
     Route: 048
  11. ASPIRIN [Concomitant]
     Indication: SUPPLEMENTATION THERAPY
     Dosage: 81 MG
     Route: 048
  12. DARBEPOETIN ALFA [Concomitant]
     Route: 058
  13. LIPITOR [Concomitant]
     Indication: HYPERLIPIDAEMIA
     Dosage: 40 MG
     Route: 048
  14. AMLODIPINE [Concomitant]
     Indication: HYPERTENSION
     Dosage: 5 MG
     Route: 048
  15. ALLOPURINOL [Concomitant]
     Indication: GOUT
     Dosage: 100 MG
     Route: 048
  16. TORSEMIDE [Concomitant]
     Dosage: 40 MG
     Route: 048
  17. SANCTURA [Concomitant]
     Dosage: 20 MG
     Route: 048
  18. GUAIFENESIN [Concomitant]
     Indication: PNEUMONIA
     Dosage: 1200 MG
     Route: 048
     Dates: start: 20120307
  19. RANEXA [Concomitant]
     Dosage: 1000 MG
     Route: 048
  20. FERROUS SULFATE TAB [Concomitant]
     Dosage: 325 MG
     Route: 048
  21. SPIRIVA [Suspect]
     Indication: CHRONIC OBSTRUCTIVE PULMONARY DISEASE
     Dosage: 18 MCG
     Route: 055
     Dates: start: 20120307
  22. LACTOBACILLUS RHAMNOSUS [Concomitant]
  23. CHOLECALCIFEROL [Concomitant]
     Dosage: 1000 MG
  24. HYDRALAZINE HCL [Concomitant]
     Dosage: 150 MG
     Route: 048
  25. LEVOTHYROXINE SODIUM [Concomitant]
     Indication: HYPOTHYROIDISM
     Dosage: 175 MCG
     Route: 048

REACTIONS (2)
  - DRY MOUTH [None]
  - ORAL PAIN [None]
